FAERS Safety Report 7250052-9 (Version None)
Quarter: 2011Q1

REPORT INFORMATION
  Report Type: 
  Country: None (occurrence: None)
  Receive Date: 20110128
  Receipt Date: 20110119
  Transmission Date: 20110831
  Serious: Yes (Life-Threatening, Hospitalization, Disabling)
  Sender: FDA-Public Use
  Company Number: JP-BAYER-2010-006488

PATIENT
  Sex: Male
  Weight: 71 kg

DRUGS (7)
  1. EPIRUBICIN HYDROCHLORIDE [Concomitant]
     Dosage: DAILY DOSE 40 MG
     Route: 013
     Dates: start: 20100916, end: 20100916
  2. NEXAVAR [Suspect]
     Indication: HEPATIC NEOPLASM MALIGNANT
     Dosage: 400 MG, BID
     Route: 048
     Dates: start: 20101206, end: 20101212
  3. LIPIODOL ULTRA-FLUIDE [Concomitant]
     Dosage: DAILY DOSE 8 ML
     Route: 013
     Dates: start: 20100916, end: 20100916
  4. NORVASC [Concomitant]
     Indication: HYPERTENSION
     Dosage: DAILY DOSE 2.5 MG
     Route: 048
  5. MAGLAX [Concomitant]
     Indication: CONSTIPATION
     Dosage: DAILY DOSE 990 MG
     Route: 048
  6. NEXAVAR [Suspect]
     Dosage: 400 MG, ONCE
     Route: 048
     Dates: start: 20110104, end: 20110104
  7. GLYCYRON [Concomitant]
     Indication: CHRONIC HEPATITIS
     Dosage: DAILY DOSE 6 DF
     Route: 048

REACTIONS (2)
  - TUMOUR LYSIS SYNDROME [None]
  - HEPATIC ENCEPHALOPATHY [None]
